FAERS Safety Report 19808906 (Version 1)
Quarter: 2021Q3

REPORT INFORMATION
  Report Type: Spontaneous
  Country: US (occurrence: US)
  Receive Date: 20210908
  Receipt Date: 20210908
  Transmission Date: 20211014
  Serious: No
  Sender: FDA-Public Use
  Company Number: US-CELGENEUS-USA-20210809583

PATIENT
  Sex: Male

DRUGS (1)
  1. REVLIMID [Suspect]
     Active Substance: LENALIDOMIDE
     Indication: DIFFUSE LARGE B-CELL LYMPHOMA
     Dosage: 10 MILLIGRAM
     Route: 048
     Dates: start: 202108

REACTIONS (6)
  - Product dose omission issue [Unknown]
  - Dizziness [Unknown]
  - Extrasystoles [Unknown]
  - Swelling face [Unknown]
  - Cold sweat [Unknown]
  - Headache [Unknown]
